FAERS Safety Report 15774335 (Version 1)
Quarter: 2018Q4

REPORT INFORMATION
  Report Type: Other
  Country: DE (occurrence: DE)
  Receive Date: 20181229
  Receipt Date: 20181229
  Transmission Date: 20190205
  Serious: Yes (Other)
  Sender: FDA-Public Use
  Company Number: DE-ACCORD-096470

PATIENT

DRUGS (2)
  1. SULFAMETHOXAZOLE/TRIMETHOPRIM [Concomitant]
     Indication: ANTIFUNGAL PROPHYLAXIS
  2. TEMOZOLOMIDE. [Suspect]
     Active Substance: TEMOZOLOMIDE
     Indication: GLIOBLASTOMA MULTIFORME
     Dosage: DAILY?DOSE:?75?MG/M2?MILLIGRAM(S)/SQ.?METER?EVERY?DAY
     Route: 048

REACTIONS (2)
  - Thrombocytopenia [Unknown]
  - Embolism [Unknown]
